FAERS Safety Report 8315193-3 (Version None)
Quarter: 2012Q2

REPORT INFORMATION
  Report Type: 
  Country: None (occurrence: None)
  Receive Date: 20120426
  Receipt Date: 20120424
  Transmission Date: 20120825
  Serious: Yes (Other)
  Sender: FDA-Public Use
  Company Number: JP-GLAXOSMITHKLINE-B0798321A

PATIENT
  Sex: Male

DRUGS (3)
  1. DUTASTERIDE [Suspect]
     Indication: BENIGN PROSTATIC HYPERPLASIA
     Route: 048
  2. TAMSULOSIN HCL [Concomitant]
  3. URIEF [Suspect]
     Route: 048

REACTIONS (3)
  - ALANINE AMINOTRANSFERASE INCREASED [None]
  - GAMMA-GLUTAMYLTRANSFERASE INCREASED [None]
  - ASPARTATE AMINOTRANSFERASE INCREASED [None]
